FAERS Safety Report 21676557 (Version 1)
Quarter: 2022Q4

REPORT INFORMATION
  Report Type: Report from Study
  Country: FR (occurrence: FR)
  Receive Date: 20221202
  Receipt Date: 20221202
  Transmission Date: 20230113
  Serious: Yes (Death, Hospitalization, Other)
  Sender: FDA-Public Use
  Company Number: FR-GILEAD-2022-0606411

PATIENT
  Sex: Female
  Weight: 63 kg

DRUGS (1)
  1. SACITUZUMAB GOVITECAN [Suspect]
     Active Substance: SACITUZUMAB GOVITECAN
     Indication: Triple negative breast cancer
     Dosage: 10 MG/KG, C1 D1/D8
     Route: 042
     Dates: start: 20211208, end: 20211215

REACTIONS (5)
  - Asthenia [Unknown]
  - Dyspnoea [Unknown]
  - Disease progression [Fatal]
  - Pyrexia [Unknown]
  - Gastrointestinal toxicity [Unknown]

NARRATIVE: CASE EVENT DATE: 20211222
